FAERS Safety Report 9827709 (Version 1)
Quarter: 2013Q4

REPORT INFORMATION
  Report Type: Spontaneous
  Country: US (occurrence: None)
  Receive Date: 20131120
  Receipt Date: 20131120
  Transmission Date: 20140711
  Serious: Yes (Other)
  Sender: FDA-Public Use
  Company Number: 1000047411

PATIENT
  Age: 20 Year
  Sex: Female

DRUGS (2)
  1. VIIBRYD [Suspect]
     Indication: DEPRESSION
     Dosage: 1 IN 1 D
     Route: 048
     Dates: start: 20130725
  2. CLONAZEPAM (CLONAZEPAM) (CLONAZEPAM) [Concomitant]

REACTIONS (6)
  - Nausea [None]
  - Bradyphrenia [None]
  - Vomiting [None]
  - Hyperhidrosis [None]
  - Headache [None]
  - Palpitations [None]
